FAERS Safety Report 21386051 (Version 1)
Quarter: 2022Q3

REPORT INFORMATION
  Report Type: Spontaneous
  Country: KR (occurrence: KR)
  Receive Date: 20220928
  Receipt Date: 20220928
  Transmission Date: 20221027
  Serious: Yes (Hospitalization, Other)
  Sender: FDA-Public Use
  Company Number: KR-ORGANON-O2209KOR001710

PATIENT
  Age: 59 Year
  Sex: Male
  Weight: 73.2 kg

DRUGS (33)
  1. REMERON SOLTAB [Suspect]
     Active Substance: MIRTAZAPINE
     Indication: Depression
     Dosage: 1 FORMULATION, 1 DAY
     Route: 048
     Dates: start: 20161013
  2. MONTELUKAST SODIUM [Concomitant]
     Active Substance: MONTELUKAST SODIUM
     Indication: Bronchitis
     Dosage: 1 FORMULATION, 1 DAY
     Route: 048
     Dates: start: 20190314, end: 20191011
  3. METFORMIN HYDROCHLORIDE [Concomitant]
     Active Substance: METFORMIN HYDROCHLORIDE
     Indication: Type 2 diabetes mellitus
     Dosage: 1 FORMULATION, 1 DAY
     Route: 048
     Dates: start: 20150328
  4. METHYLPREDNISOLONE [Concomitant]
     Active Substance: METHYLPREDNISOLONE
     Indication: Asthma
     Dosage: 3 FORMULATION, 1 DAY; (FORMULATION REPORTED AS TRADITIONAL TABLET)
     Route: 048
     Dates: start: 20190328, end: 20191028
  5. DOXOFYLLINE [Concomitant]
     Active Substance: DOXOFYLLINE
     Indication: Asthma
     Dosage: 2 DOSAGE FORM, QD (FORMULATION REPORTED AS TRADITIONAL TABLET)
     Route: 048
     Dates: start: 20150228
  6. PRANLUKAST HEMIHYDRATE [Concomitant]
     Active Substance: PRANLUKAST HEMIHYDRATE
     Indication: Asthma
     Dosage: 2 DOSAGE FORM, QD
     Route: 048
     Dates: start: 20171206
  7. BEPOTASTINE BESYLATE [Concomitant]
     Active Substance: BEPOTASTINE BESYLATE
     Indication: Rhinitis allergic
     Dosage: 2 FORMULATION, 1 DAY
     Dates: start: 20180816
  8. AZELASTINE HYDROCHLORIDE [Concomitant]
     Active Substance: AZELASTINE HYDROCHLORIDE
     Indication: Asthma
     Dosage: 4 FORMULATION, 1 DAY
     Route: 048
     Dates: start: 20150703
  9. IVY LEAF COUGH [Concomitant]
     Indication: Rhinitis allergic
     Dosage: 4 FORMULATION, 1 DAY; (30% ETHANOL EXTRACT (5~7.5?1))
     Route: 048
     Dates: start: 20190911
  10. PSEUDOEPHEDRINE HYDROCHLORIDE;TRIPROLIDINE HYDROCHLORIDE MONOHYDRATE [Concomitant]
     Indication: Rhinitis allergic
     Dosage: 0.5 FORMULATION, 1 DAY (FORMULATION REPORTED AS TRADITIONAL TABLET)
     Route: 048
     Dates: start: 20190103
  11. ALPRAZOLAM [Concomitant]
     Active Substance: ALPRAZOLAM
     Indication: Depression
     Dosage: 2 FORMULATION, 1 DAY (FORMULATION REPORTED AS TRADITIONAL TABLET)
     Route: 048
     Dates: start: 20190124
  12. TRIAZOLAM [Concomitant]
     Active Substance: TRIAZOLAM
     Indication: Insomnia
     Dosage: 2 FORMULATION, 1 DAY(FORMULATION REPORTED AS TRADITIONAL TABLET)
     Route: 048
  13. ZOLPIDEM TARTRATE [Concomitant]
     Active Substance: ZOLPIDEM TARTRATE
     Indication: Insomnia
     Dosage: 1 FORMULATION, 1 DAY
     Route: 048
     Dates: start: 20170524
  14. QUETIAPINE FUMARATE [Concomitant]
     Active Substance: QUETIAPINE FUMARATE
     Indication: Depression
     Dosage: 1 FORMULATION, 1 DAY
     Route: 048
     Dates: start: 20190207
  15. AFLOQUALONE [Concomitant]
     Active Substance: AFLOQUALONE
     Indication: Extrapyramidal disorder
     Dosage: 2 FORMULATION, 1 DAY
     Route: 048
     Dates: start: 20190103
  16. AFLOQUALONE [Concomitant]
     Active Substance: AFLOQUALONE
     Indication: Movement disorder
  17. NAPROXEN SODIUM [Concomitant]
     Active Substance: NAPROXEN SODIUM
     Indication: Extrapyramidal disorder
     Dosage: 2 FORMULATION, 1 WEEK
     Route: 048
     Dates: start: 20190328, end: 20191117
  18. NAPROXEN SODIUM [Concomitant]
     Active Substance: NAPROXEN SODIUM
     Indication: Movement disorder
  19. ACETAMINOPHEN\CODEINE\IBUPROFEN [Concomitant]
     Active Substance: ACETAMINOPHEN\CODEINE\IBUPROFEN
     Indication: Lumbar radiculopathy
     Dosage: 3 FORMULATION, 1 DAY (FORMULATION REPORTED AS HARD CAPSULES, POWDER)
     Route: 048
     Dates: start: 20190610, end: 20191118
  20. ACETAMINOPHEN\CODEINE\IBUPROFEN [Concomitant]
     Active Substance: ACETAMINOPHEN\CODEINE\IBUPROFEN
     Indication: Intervertebral disc disorder
  21. ACETAMINOPHEN\TRAMADOL HYDROCHLORIDE [Concomitant]
     Active Substance: ACETAMINOPHEN\TRAMADOL HYDROCHLORIDE
     Indication: Rheumatoid arthritis
     Dosage: 2 FORMULATION, 1 DAY
     Route: 048
     Dates: start: 20160624
  22. CELECOXIB [Concomitant]
     Active Substance: CELECOXIB
     Indication: Rheumatoid arthritis
     Dosage: 1 FORMULATION, 1 DAY (FORMULATION: HARD CAPSULE, POWDER)
     Route: 048
     Dates: start: 20161202
  23. HYDROXYCHLOROQUINE SULFATE [Concomitant]
     Active Substance: HYDROXYCHLOROQUINE SULFATE
     Indication: Rheumatoid arthritis
     Dosage: 1 FORMULATION, 1 DAY
     Route: 048
     Dates: start: 20180418
  24. ATORVASTATIN CALCIUM [Concomitant]
     Active Substance: ATORVASTATIN CALCIUM
     Indication: Lipoprotein metabolism disorder
     Dosage: 1 FORMULATION, 1 DAY
     Route: 048
     Dates: start: 20180704, end: 20191113
  25. ATORVASTATIN CALCIUM [Concomitant]
     Active Substance: ATORVASTATIN CALCIUM
     Indication: Dyslipidaemia
     Dosage: 1 FORMULATION, QD
     Route: 048
     Dates: start: 20191114
  26. PREGABALIN [Concomitant]
     Active Substance: PREGABALIN
     Indication: Rheumatoid arthritis
     Dosage: 2 FORMULATION, 1 DAY (FORMULATION REPORTED AS HARD CAPSULE, POWDER)
     Dates: start: 20180418
  27. DULOXETINE HYDROCHLORIDE [Concomitant]
     Active Substance: DULOXETINE HYDROCHLORIDE
     Indication: Rheumatoid arthritis
     Dosage: 1 FORMULATION, 1 DAY (FORMULATION REPORTED AS ENTERIC CAPSULES, PELLETS)
     Route: 048
     Dates: start: 20191002
  28. ERDOSTEINE [Concomitant]
     Active Substance: ERDOSTEINE
     Indication: Bronchitis
     Dosage: 3 FORMULATION, 1 DAY (FORMULATION REPORTED AS HARD CAPSULE, POWDER)
     Route: 048
     Dates: start: 20190103, end: 20191011
  29. ACETAMINOPHEN [Concomitant]
     Active Substance: ACETAMINOPHEN
     Indication: Bronchitis
     Dosage: 3 DOSAGE FORM, QD
     Route: 048
     Dates: start: 20190911
  30. RIVAROXABAN [Concomitant]
     Active Substance: RIVAROXABAN
     Indication: Phlebitis
     Dosage: 1 FORMULATION, 1 DAY
     Route: 048
     Dates: start: 20190718
  31. RIVAROXABAN [Concomitant]
     Active Substance: RIVAROXABAN
     Indication: Thrombophlebitis
  32. PROPRANOLOL HYDROCHLORIDE [Concomitant]
     Active Substance: PROPRANOLOL HYDROCHLORIDE
     Indication: Phlebitis
     Dosage: 1 FORMULATION, 1 DAY (FORMULATION REPORTED AS TRADITIONAL TABLET)
     Route: 048
     Dates: start: 20190124
  33. PROPRANOLOL HYDROCHLORIDE [Concomitant]
     Active Substance: PROPRANOLOL HYDROCHLORIDE
     Indication: Thrombophlebitis

REACTIONS (2)
  - Pneumonia [Recovered/Resolved]
  - Hyperglycaemia [Recovering/Resolving]

NARRATIVE: CASE EVENT DATE: 20191114
